FAERS Safety Report 5048213-2 (Version None)
Quarter: 2006Q2

REPORT INFORMATION
  Report Type: 
  Country: None (occurrence: None)
  Receive Date: 20060601
  Receipt Date: 20060215
  Transmission Date: 20061013
  Serious: No
  Sender: FDA-Public Use
  Company Number: 2006PV008717

PATIENT
  Age: 53 Year
  Sex: Female
  Weight: 108.4097 kg

DRUGS (7)
  1. BYETTA [Suspect]
     Indication: BLOOD PRESSURE INADEQUATELY CONTROLLED
     Dosage: SEE IMAGE
     Route: 058
     Dates: start: 20050901, end: 20051001
  2. BYETTA [Suspect]
     Indication: DIABETES MELLITUS NON-INSULIN-DEPENDENT
     Dosage: SEE IMAGE
     Route: 058
     Dates: start: 20050901, end: 20051001
  3. BYETTA [Suspect]
     Indication: BLOOD PRESSURE INADEQUATELY CONTROLLED
     Dosage: SEE IMAGE
     Route: 058
     Dates: start: 20051001, end: 20060201
  4. BYETTA [Suspect]
     Indication: DIABETES MELLITUS NON-INSULIN-DEPENDENT
     Dosage: SEE IMAGE
     Route: 058
     Dates: start: 20051001, end: 20060201
  5. LABETALOL HCL [Suspect]
     Dosage: 1200 MG;BID;PO
     Route: 048
     Dates: start: 20010101
  6. METFORMIN [Concomitant]
  7. ARIMIDEX [Concomitant]

REACTIONS (4)
  - DYSGEUSIA [None]
  - NAUSEA [None]
  - RETCHING [None]
  - VOMITING [None]
